FAERS Safety Report 6958984-3 (Version None)
Quarter: 2010Q3

REPORT INFORMATION
  Report Type: 
  Country: None (occurrence: None)
  Receive Date: 20100831
  Receipt Date: 20100826
  Transmission Date: 20110219
  Serious: Yes (Hospitalization)
  Sender: FDA-Public Use
  Company Number: FR-PFIZER INC-2010107471

PATIENT
  Age: 91 Year
  Sex: Male

DRUGS (10)
  1. SOLU-MEDROL [Suspect]
     Dosage: 1ST COURSE OF CHEMOTHERAPY
     Route: 042
     Dates: start: 20080706, end: 20080706
  2. SOLU-MEDROL [Suspect]
     Dosage: 60 MG DAILY
     Route: 042
     Dates: start: 20081218, end: 20081218
  3. DOXORUBICIN HCL [Suspect]
     Dosage: 1ST COURSE OF CHEMOTHERAPY
     Route: 042
     Dates: start: 20080706, end: 20080706
  4. DOXORUBICIN HCL [Suspect]
     Dosage: 25 MG/M2, CYCLIC
     Route: 042
     Dates: start: 20081218, end: 20081218
  5. MABTHERA [Suspect]
     Dosage: 1ST COURSE OF CHEMOTHERAPY
     Route: 042
     Dates: start: 20080706, end: 20080706
  6. MABTHERA [Suspect]
     Dosage: 375 MG/M2, CYCLIC
     Route: 042
     Dates: start: 20081218, end: 20081218
  7. ENDOXAN [Suspect]
     Dosage: 1ST COURSE OF CHEMOTHERAPY
     Route: 042
     Dates: start: 20080706, end: 20080706
  8. ENDOXAN [Suspect]
     Dosage: 750 MG/M2, CYCLIC
     Route: 042
     Dates: start: 20081218, end: 20081218
  9. ONCOVIN [Suspect]
     Dosage: 1ST COURSE OF CHEMOTHERAPY
     Route: 042
     Dates: start: 20080706, end: 20080706
  10. ONCOVIN [Suspect]
     Dosage: 2 MG, CYCLIC
     Route: 042
     Dates: start: 20081218, end: 20081218

REACTIONS (2)
  - ANAEMIA [None]
  - NEUTROPENIA [None]
